FAERS Safety Report 9565790 (Version 2)
Quarter: 2013Q4

REPORT INFORMATION
  Report Type: Report from Study
  Country: IE (occurrence: IE)
  Receive Date: 20130930
  Receipt Date: 20131003
  Transmission Date: 20140711
  Serious: Yes (Death)
  Sender: FDA-Public Use
  Company Number: IE-GLAXOSMITHKLINE-B0925637A

PATIENT
  Sex: 0

DRUGS (5)
  1. VOTRIENT [Suspect]
     Indication: PRODUCT USED FOR UNKNOWN INDICATION
     Dosage: 800MG PER DAY
     Route: 048
     Dates: start: 20130719
  2. SERETIDE [Concomitant]
  3. INHALER [Concomitant]
  4. CORSODYL [Concomitant]
  5. PREDNISOLONE [Concomitant]

REACTIONS (1)
  - Death [Fatal]
